FAERS Safety Report 8355000-6 (Version None)
Quarter: 2012Q2

REPORT INFORMATION
  Report Type: 
  Country: None (occurrence: None)
  Receive Date: 20120511
  Receipt Date: 20120508
  Transmission Date: 20120825
  Serious: Yes (Death, Other)
  Sender: FDA-Public Use
  Company Number: US-CELGENEUS-163-21880-12031295

PATIENT
  Sex: Female

DRUGS (25)
  1. VELCADE [Suspect]
     Route: 065
     Dates: start: 20110901, end: 20111215
  2. EMLA [Concomitant]
     Route: 065
  3. DEXAMETHASONE [Concomitant]
     Route: 065
     Dates: start: 20101023
  4. IMMUNE GLOBULIN INTRAVENOUS (HUMAN) [Concomitant]
     Route: 065
  5. ATIVAN [Concomitant]
     Indication: ANXIETY
     Dosage: .5 MILLIGRAM
     Route: 065
  6. AVELOX [Concomitant]
     Route: 065
  7. VITAMIN D [Concomitant]
     Dosage: 50,000 U
     Route: 065
  8. MELPHALAN HYDROCHLORIDE [Concomitant]
     Dosage: 8 MILLIGRAM
     Route: 048
  9. DEXAMETHASONE [Concomitant]
     Dosage: 20 MILLIGRAM
     Route: 065
  10. DEXAMETHASONE [Concomitant]
     Dosage: 20 MILLIGRAM
     Route: 065
     Dates: start: 20101220
  11. DEXAMETHASONE [Concomitant]
     Dosage: 40 MILLIGRAM
     Route: 065
     Dates: start: 20110301, end: 20110429
  12. ZAROXOLYN [Concomitant]
     Dosage: 2.5 MILLIGRAM
     Route: 065
  13. LASIX [Concomitant]
     Dosage: 40 MILLIGRAM
     Route: 065
  14. LISINOPRIL [Concomitant]
     Dosage: 2.5 MILLIGRAM
     Route: 065
     Dates: start: 20120101
  15. CALCIUM CARBONATE [Concomitant]
     Route: 065
  16. ASPIRIN [Concomitant]
     Dosage: 81 MILLIGRAM
     Route: 065
  17. ZOMETA [Concomitant]
     Route: 065
  18. REVLIMID [Suspect]
     Indication: MULTIPLE MYELOMA
     Dosage: 15 MILLIGRAM
     Route: 048
     Dates: start: 20110323, end: 20110901
  19. PREDNISONE TAB [Concomitant]
     Dosage: 60 MILLIGRAM
     Route: 048
  20. VICODIN [Concomitant]
     Indication: PAIN
     Dosage: 5/500
     Route: 065
  21. COMPAZINE [Concomitant]
     Indication: NAUSEA
     Dosage: 10 MILLIGRAM
     Route: 065
  22. NAPROXEN (ALEVE) [Concomitant]
     Dosage: 200 MILLIGRAM
     Route: 065
  23. ARANESP [Concomitant]
     Route: 065
  24. NEXIUM [Concomitant]
     Dosage: 40 MILLIGRAM
     Route: 065
  25. CELEBREX [Concomitant]
     Dosage: 200 MILLIGRAM
     Route: 065

REACTIONS (2)
  - DISEASE PROGRESSION [None]
  - PULMONARY HYPERTENSION [None]
